FAERS Safety Report 24587804 (Version 1)
Quarter: 2024Q4

REPORT INFORMATION
  Report Type: Report from Study
  Country: BR (occurrence: BR)
  Receive Date: 20241107
  Receipt Date: 20241107
  Transmission Date: 20250115
  Serious: Yes (Other)
  Sender: ROCHE
  Company Number: BR-002147023-NVSC2021BR196721

PATIENT
  Age: 71 Year
  Sex: Male
  Weight: 90 kg

DRUGS (5)
  1. LUCENTIS [Suspect]
     Active Substance: RANIBIZUMAB
     Indication: Macular degeneration
     Route: 065
     Dates: start: 20210824
  2. LUCENTIS [Suspect]
     Active Substance: RANIBIZUMAB
     Dosage: 03 APPLICATIONS EVERY 30 DAYS (5 YEARS AGO)
     Route: 050
  3. LUCENTIS [Suspect]
     Active Substance: RANIBIZUMAB
     Dosage: UNK, EVERY 15 DAYS
     Route: 065
  4. ATORVASTATIN [Suspect]
     Active Substance: ATORVASTATIN
     Indication: Blood cholesterol increased
     Dosage: 1 DF, QOD (1 TABLET OF 10 MG) (04 YEAR AGO)
     Route: 048
  5. ACLASTA [Suspect]
     Active Substance: ZOLEDRONIC ACID
     Indication: Product used for unknown indication
     Route: 065

REACTIONS (9)
  - Blindness [Not Recovered/Not Resolved]
  - Haemorrhage [Unknown]
  - Cataract [Not Recovered/Not Resolved]
  - Visual impairment [Not Recovered/Not Resolved]
  - Macular degeneration [Unknown]
  - Treatment failure [Unknown]
  - Tachyphylaxis [Unknown]
  - Inappropriate schedule of product administration [Unknown]
  - Urinary retention [Not Recovered/Not Resolved]

NARRATIVE: CASE EVENT DATE: 20241029
